FAERS Safety Report 6455778-2 (Version None)
Quarter: 2009Q4

REPORT INFORMATION
  Report Type: 
  Country: None (occurrence: None)
  Receive Date: 20091125
  Receipt Date: 20091119
  Transmission Date: 20100525
  Serious: Yes (Hospitalization)
  Sender: FDA-Public Use
  Company Number: JP-ABBOTT-09P-087-0570276-00

PATIENT

DRUGS (4)
  1. EURODIN [Suspect]
     Indication: DRUG USE FOR UNKNOWN INDICATION
     Route: 048
     Dates: start: 20090101, end: 20090401
  2. EURODIN [Suspect]
     Route: 048
     Dates: start: 20090401, end: 20090401
  3. HALCION [Suspect]
     Indication: DRUG USE FOR UNKNOWN INDICATION
     Route: 048
     Dates: end: 20090401
  4. HALCION [Suspect]
     Route: 048
     Dates: start: 20090401, end: 20090401

REACTIONS (2)
  - OVERDOSE [None]
  - SHOCK [None]
